FAERS Safety Report 8402826-6 (Version None)
Quarter: 2012Q2

REPORT INFORMATION
  Report Type: 
  Country: None (occurrence: None)
  Receive Date: 20120601
  Receipt Date: 20120521
  Transmission Date: 20120825
  Serious: Yes (Other)
  Sender: FDA-Public Use
  Company Number: US-CELGENEUS-163-21880-12052776

PATIENT
  Sex: Female

DRUGS (1)
  1. REVLIMID [Suspect]
     Dosage: 10 MILLIGRAM
     Route: 048
     Dates: start: 20120512

REACTIONS (5)
  - PRURITUS [None]
  - BREAST PAIN [None]
  - DYSPNOEA [None]
  - ARTHROPATHY [None]
  - FATIGUE [None]
